FAERS Safety Report 4320252-6 (Version None)
Quarter: 2004Q1

REPORT INFORMATION
  Report Type: 
  Country: None (occurrence: None)
  Receive Date: 20040317
  Receipt Date: 20040305
  Transmission Date: 20041129
  Serious: Yes (Other)
  Sender: FDA-Public Use
  Company Number: 2004013234

PATIENT
  Age: 14 Year
  Sex: Male

DRUGS (8)
  1. FLUCONAZOLE [Suspect]
     Indication: ILL-DEFINED DISORDER
  2. CISAPRIDE (CISAPRIDE) [Suspect]
     Indication: ILL-DEFINED DISORDER
  3. SEVOFLURANE [Suspect]
     Indication: ANAESTHESIA
  4. CEPHALOSPORINS AND AND RELATED SUBSTANCES [Concomitant]
  5. VANCOMYCIN [Concomitant]
  6. ONDANSETRON HCL [Concomitant]
  7. LACTULOSE [Concomitant]
  8. ALL OTHER THERAPEUTIC PRODUCTS [Concomitant]

REACTIONS (16)
  - ALANINE AMINOTRANSFERASE INCREASED [None]
  - ANAESTHETIC COMPLICATION CARDIAC [None]
  - ASPARTATE AMINOTRANSFERASE INCREASED [None]
  - BLOOD ALKALINE PHOSPHATASE INCREASED [None]
  - BLOOD CREATININE DECREASED [None]
  - BLOOD LACTATE DEHYDROGENASE INCREASED [None]
  - BLOOD UREA DECREASED [None]
  - CARDIOMYOPATHY [None]
  - DRUG LEVEL INCREASED [None]
  - ELECTROCARDIOGRAM QT PROLONGED [None]
  - GAMMA-GLUTAMYLTRANSFERASE INCREASED [None]
  - HAEMOGLOBIN DECREASED [None]
  - PROCEDURAL COMPLICATION [None]
  - STRESS SYMPTOMS [None]
  - VENTRICULAR EXTRASYSTOLES [None]
  - VENTRICULAR TACHYCARDIA [None]
